FAERS Safety Report 7491291-1 (Version None)
Quarter: 2011Q2

REPORT INFORMATION
  Report Type: 
  Country: None (occurrence: None)
  Receive Date: 20110519
  Receipt Date: 20110513
  Transmission Date: 20111010
  Serious: Yes (Death)
  Sender: FDA-Public Use
  Company Number: B0706119A

PATIENT
  Age: 28 Year
  Sex: Female
  Weight: 85.5 kg

DRUGS (12)
  1. THEOBROMINE [Concomitant]
  2. IBUPROFEN [Concomitant]
     Dates: start: 20090522
  3. ISENTRESS [Suspect]
     Indication: HIV INFECTION
     Dosage: 400MG TWICE PER DAY
     Route: 048
     Dates: start: 20090921
  4. VALIUM [Concomitant]
     Dates: start: 20100802
  5. LOPERAMIDE [Concomitant]
  6. COTININE [Concomitant]
  7. MARAVIROC [Suspect]
     Indication: HIV INFECTION
     Dosage: 300MG TWICE PER DAY
     Route: 048
     Dates: start: 20090921
  8. DEPAKOTE [Concomitant]
     Dates: start: 20100802
  9. NICOTINE [Concomitant]
  10. TRUVADA [Suspect]
     Indication: HIV INFECTION
     Dosage: 1TAB PER DAY
     Route: 048
     Dates: start: 20090921
  11. NORFENTANYL [Concomitant]
  12. FENTANYL [Suspect]
     Indication: PRODUCT USED FOR UNKNOWN INDICATION

REACTIONS (1)
  - OVERDOSE [None]
